FAERS Safety Report 9863379 (Version 1)
Quarter: 2014Q1

REPORT INFORMATION
  Report Type: Spontaneous
  Country: GB (occurrence: GB)
  Receive Date: 20140203
  Receipt Date: 20140203
  Transmission Date: 20141002
  Serious: Yes (Disabling)
  Sender: FDA-Public Use
  Company Number: GB-ELI_LILLY_AND_COMPANY-GB201401009326

PATIENT
  Age: 61 Year
  Sex: Male
  Weight: 90.2 kg

DRUGS (20)
  1. DULOXETINE HYDROCHLORIDE [Suspect]
     Indication: HYPERTONIC BLADDER
     Dosage: UNK
     Route: 065
     Dates: start: 20131230
  2. METHOTREXATE [Concomitant]
     Dosage: UNK UNK, UNKNOWN
     Route: 065
     Dates: start: 20130918
  3. CANDESARTAN [Concomitant]
     Dosage: UNK UNK, UNKNOWN
     Route: 065
     Dates: start: 20130930
  4. FLUTICASONE PROPIONATE [Concomitant]
     Dosage: UNK UNK, UNKNOWN
     Route: 065
     Dates: start: 20130930
  5. SALMETEROL [Concomitant]
     Dosage: UNK UNK, UNKNOWN
     Route: 065
     Dates: start: 20130930
  6. BUDESONIDE [Concomitant]
     Dosage: UNK UNK, UNKNOWN
     Route: 065
     Dates: start: 20130930
  7. DUTASTERIDE [Concomitant]
     Dosage: UNK UNK, UNKNOWN
     Route: 065
     Dates: start: 20131018, end: 20131117
  8. PREDNISOLONE [Concomitant]
     Dosage: UNK UNK, UNKNOWN
     Route: 065
     Dates: start: 20131104
  9. CO-DYDRAMOL [Concomitant]
     Dosage: UNK UNK, UNKNOWN
     Route: 065
     Dates: start: 20131104, end: 20131202
  10. CALCIUM CARBONATE [Concomitant]
     Dosage: UNK UNK, UNKNOWN
     Route: 065
     Dates: start: 20131115
  11. D3 [Concomitant]
     Dosage: UNK UNK, UNKNOWN
     Route: 065
     Dates: start: 20131119, end: 20131119
  12. FOLIC ACID [Concomitant]
     Dosage: UNK UNK, UNKNOWN
     Route: 065
     Dates: start: 20131119, end: 20131217
  13. LANSOPRAZOLE [Concomitant]
     Dosage: UNK UNK, UNKNOWN
     Route: 065
     Dates: start: 20131122
  14. HYDROCORTISONE [Concomitant]
     Dosage: UNK UNK, UNKNOWN
     Route: 065
     Dates: start: 20131223, end: 20131228
  15. AMOXICILLIN [Concomitant]
     Dosage: UNK UNK, UNKNOWN
     Route: 065
     Dates: start: 20131223, end: 20131230
  16. HYDROXYCHLOROQUINE SULFATE [Concomitant]
     Dosage: UNK UNK, UNKNOWN
     Route: 065
     Dates: start: 20131230
  17. TIMODINE [Concomitant]
     Dosage: UNK UNK, UNKNOWN
     Route: 065
     Dates: start: 20131230, end: 20140104
  18. DEPO-MEDRONE [Concomitant]
     Dosage: UNK UNK, UNKNOWN
     Route: 065
     Dates: start: 20131230, end: 20140106
  19. OXIS [Concomitant]
     Dosage: UNK UNK, UNKNOWN
     Route: 065
     Dates: start: 20140116, end: 20140116
  20. AMITRIPTYLINE HYDROCHLORIDE [Concomitant]
     Dosage: UNK UNK, UNKNOWN
     Route: 065
     Dates: start: 20140116

REACTIONS (1)
  - Gastrointestinal stoma complication [Unknown]
